FAERS Safety Report 5080727-1 (Version None)
Quarter: 2006Q3

REPORT INFORMATION
  Report Type: 
  Country: None (occurrence: None)
  Receive Date: 20060809
  Receipt Date: 20060717
  Transmission Date: 20061208
  Serious: Yes (Hospitalization)
  Sender: FDA-Public Use
  Company Number: 13454509

PATIENT
  Age: 48 Year
  Sex: Male

DRUGS (3)
  1. NALTREXONE HCL [Suspect]
     Indication: ALCOHOLISM
  2. NALTREXONE HCL [Suspect]
     Indication: DRUG ABUSER
  3. VENLAFAXINE HCL              (VENLAFAXINA HCL) [Concomitant]

REACTIONS (3)
  - AGITATION [None]
  - GUN SHOT WOUND [None]
  - STRESS [None]
